FAERS Safety Report 19498250 (Version 1)
Quarter: 2021Q3

REPORT INFORMATION
  Report Type: Spontaneous
  Country: CN (occurrence: CN)
  Receive Date: 20210706
  Receipt Date: 20210706
  Transmission Date: 20211014
  Serious: Yes (Death, Other)
  Sender: FDA-Public Use
  Company Number: CN-PFIZER INC-2021745276

PATIENT
  Sex: Female

DRUGS (3)
  1. VFEND [Suspect]
     Active Substance: VORICONAZOLE
     Indication: ASPERGILLUS INFECTION
     Dosage: 200 MG, TWICE A DAY [ONCE EVERY 12 HOURS (Q12H)
     Dates: start: 20210304, end: 20210306
  2. VFEND [Suspect]
     Active Substance: VORICONAZOLE
     Dosage: 100 MG, TWICE A DAY (Q12H)
     Dates: start: 20210307
  3. VFEND [Suspect]
     Active Substance: VORICONAZOLE
     Indication: ASPERGILLUS INFECTION
     Dosage: 200 MG, TWICE A DAY (Q12H)
     Dates: start: 20210306

REACTIONS (4)
  - Drug ineffective [Unknown]
  - Death [Fatal]
  - Psychiatric symptom [Not Recovered/Not Resolved]
  - Hallucination [Unknown]

NARRATIVE: CASE EVENT DATE: 2021
